FAERS Safety Report 20843624 (Version 1)
Quarter: 2022Q2

REPORT INFORMATION
  Report Type: Spontaneous
  Country: FR (occurrence: FR)
  Receive Date: 20220518
  Receipt Date: 20220518
  Transmission Date: 20220721
  Serious: Yes (Death)
  Sender: FDA-Public Use
  Company Number: None

PATIENT
  Age: 37 Year
  Sex: Male

DRUGS (6)
  1. PAROXETINE [Suspect]
     Active Substance: PAROXETINE
     Indication: Product used for unknown indication
     Dosage: UNKNOWN, THERAPY START DATE : ASKU
     Route: 065
     Dates: end: 202002
  2. DIAZEPAM [Suspect]
     Active Substance: DIAZEPAM
     Indication: Product used for unknown indication
     Dosage: UNKNOWN, THERAPY START DATE : ASKU
     Route: 065
     Dates: end: 202002
  3. CYAMEMAZINE [Suspect]
     Active Substance: CYAMEMAZINE
     Indication: Product used for unknown indication
     Dosage: UNKNOWN, THERAPY START DATE : ASKU
     Route: 065
     Dates: end: 202002
  4. COCAINE [Suspect]
     Active Substance: COCAINE
     Dosage: UNKNOWN, THERAPY START DATE : ASKU
     Route: 065
     Dates: end: 202002
  5. HEROIN [Suspect]
     Active Substance: DIAMORPHINE
     Dosage: UNKNOWN, THERAPY START DATE : ASKU
     Route: 065
     Dates: end: 202002
  6. CANNABIS SATIVA SUBSP. INDICA TOP [Suspect]
     Active Substance: CANNABIS SATIVA SUBSP. INDICA TOP
     Dosage: UNKNOWN, THERAPY START DATE : ASKU
     Route: 065
     Dates: end: 202002

REACTIONS (2)
  - Drug abuse [Fatal]
  - Poisoning deliberate [Fatal]

NARRATIVE: CASE EVENT DATE: 20200201
